FAERS Safety Report 5475094-5 (Version None)
Quarter: 2007Q4

REPORT INFORMATION
  Report Type: 
  Country: None (occurrence: None)
  Receive Date: 20071002
  Receipt Date: 20070920
  Transmission Date: 20080405
  Serious: Yes (Other)
  Sender: FDA-Public Use
  Company Number: US-PFIZER INC-2007079945

PATIENT
  Sex: Male
  Weight: 118.8 kg

DRUGS (2)
  1. CHANTIX [Suspect]
     Indication: SMOKING CESSATION THERAPY
     Dates: start: 20070913, end: 20070901
  2. ALLEGRA [Concomitant]
     Indication: HYPERSENSITIVITY

REACTIONS (5)
  - GAIT DISTURBANCE [None]
  - HYPERHIDROSIS [None]
  - MYALGIA [None]
  - PAIN [None]
  - TREMOR [None]
